FAERS Safety Report 24017513 (Version 1)
Quarter: 2024Q2

REPORT INFORMATION
  Report Type: Spontaneous
  Country: US (occurrence: US)
  Receive Date: 20240627
  Receipt Date: 20240627
  Transmission Date: 20240716
  Serious: No
  Sender: FDA-Public Use
  Company Number: US-TRIS PHARMA, INC.-24US011553

PATIENT

DRUGS (2)
  1. DYANAVEL XR [Suspect]
     Active Substance: AMPHETAMINE
     Indication: Attention deficit hyperactivity disorder
     Dosage: UNK
  2. DYANAVEL XR [Suspect]
     Active Substance: AMPHETAMINE
     Dosage: 10 MILLIGRAM (STARTING DOSE)

REACTIONS (2)
  - Urinary hesitation [Recovered/Resolved]
  - Off label use [Unknown]
